FAERS Safety Report 19106093 (Version 1)
Quarter: 2021Q2

REPORT INFORMATION
  Report Type: Spontaneous
  Country: JP (occurrence: JP)
  Receive Date: 20210407
  Receipt Date: 20210407
  Transmission Date: 20210717
  Serious: Yes (Other)
  Sender: FDA-Public Use
  Company Number: JP-OTSUKA-2016_011016

PATIENT
  Age: 22 Year
  Sex: Female

DRUGS (2)
  1. ABILIFY [Suspect]
     Active Substance: ARIPIPRAZOLE
     Indication: ANXIETY DISORDER
     Dosage: 6 MG, QD, AFTER DINNER
     Route: 048
     Dates: start: 201510
  2. ABILIFY [Suspect]
     Active Substance: ARIPIPRAZOLE
     Indication: ANXIETY DISORDER
     Dosage: 3 MG, UNK
     Route: 048
     Dates: end: 20161111

REACTIONS (4)
  - Feeling abnormal [Unknown]
  - Gaze palsy [Unknown]
  - Somnolence [Unknown]
  - Off label use [Unknown]

NARRATIVE: CASE EVENT DATE: 201510
